FAERS Safety Report 5486558-2 (Version None)
Quarter: 2007Q3

REPORT INFORMATION
  Report Type: 
  Country: None (occurrence: None)
  Receive Date: 20070920
  Receipt Date: 20061102
  Transmission Date: 20080115
  Serious: Yes (Hospitalization)
  Sender: FDA-Public Use
  Company Number: 06P-163-0349023-00

PATIENT
  Age: 45 Year
  Sex: Male

DRUGS (1)
  1. DEPAKOTE ER [Suspect]
     Indication: BIPOLAR DISORDER
     Dosage: PER ORAL
     Route: 048
     Dates: start: 20051201, end: 20060601

REACTIONS (2)
  - AMMONIA INCREASED [None]
  - TOXIC ENCEPHALOPATHY [None]
